FAERS Safety Report 12493513 (Version 1)
Quarter: 2016Q2

REPORT INFORMATION
  Report Type: Spontaneous
  Country: FR (occurrence: FR)
  Receive Date: 20160623
  Receipt Date: 20160623
  Transmission Date: 20160815
  Serious: Yes (Other)
  Sender: FDA-Public Use
  Company Number: FR-009507513-1606FRA000440

PATIENT
  Sex: Female
  Weight: 50 kg

DRUGS (1)
  1. NEXPLANON [Suspect]
     Active Substance: ETONOGESTREL
     Indication: CONTRACEPTION
     Dosage: UNK
     Route: 059
     Dates: start: 20160524

REACTIONS (3)
  - Device dislocation [Not Recovered/Not Resolved]
  - Metrorrhagia [Unknown]
  - Weight increased [Unknown]

NARRATIVE: CASE EVENT DATE: 2016
